FAERS Safety Report 7366335-8 (Version None)
Quarter: 2011Q1

REPORT INFORMATION
  Report Type: 
  Country: None (occurrence: None)
  Receive Date: 20110317
  Receipt Date: 20110317
  Transmission Date: 20110831
  Serious: Yes (Other)
  Sender: FDA-Public Use
  Company Number: None

PATIENT
  Sex: Female

DRUGS (3)
  1. CIMZIA [Suspect]
     Indication: CROHN'S DISEASE
     Dosage: 400MG EVERY 4 WEEKS SUBCUTANEOUS INJECTION
     Route: 058
     Dates: start: 20100714, end: 20110208
  2. ASACOL [Concomitant]
  3. MERCAPTOPURINE [Concomitant]

REACTIONS (3)
  - ANOGENITAL DYSPLASIA [None]
  - BLOOD BILIRUBIN ABNORMAL [None]
  - ANAL HAEMORRHAGE [None]
